FAERS Safety Report 6201471-0 (Version None)
Quarter: 2009Q2

REPORT INFORMATION
  Report Type: 
  Country: None (occurrence: None)
  Receive Date: 20090526
  Receipt Date: 20090514
  Transmission Date: 20091009
  Serious: Yes (Hospitalization, Other)
  Sender: FDA-Public Use
  Company Number: US-ROCHE-633304

PATIENT
  Sex: Male

DRUGS (13)
  1. PEG-INTERFERON A-2A (RO 25-8310) [Suspect]
     Indication: HEPATITIS C
     Dosage: FORM: PRE-FILLED SYRINGE
     Route: 065
     Dates: start: 20090116
  2. RIBAVIRIN [Suspect]
     Indication: HEPATITIS C
     Route: 065
  3. ZOLOFT [Concomitant]
  4. SYNTHROID [Concomitant]
  5. LISINOPRIL [Concomitant]
  6. LAMICTAL [Concomitant]
  7. MULTI-VITAMIN [Concomitant]
  8. OMEPRAZOLE [Concomitant]
  9. AMBIEN [Concomitant]
  10. LACTULOSE [Concomitant]
  11. RANITIDINE [Concomitant]
  12. PHENERGAN [Concomitant]
  13. PROCRIT [Concomitant]

REACTIONS (5)
  - AMMONIA INCREASED [None]
  - INSOMNIA [None]
  - LOSS OF CONSCIOUSNESS [None]
  - RED BLOOD CELL COUNT DECREASED [None]
  - WEIGHT DECREASED [None]
